FAERS Safety Report 25684570 (Version 1)
Quarter: 2025Q3

REPORT INFORMATION
  Report Type: Report from Study
  Country: US (occurrence: US)
  Receive Date: 20250815
  Receipt Date: 20250815
  Transmission Date: 20251020
  Serious: Yes (Other)
  Sender: ALEXION PHARMACEUTICALS
  Company Number: US-AstraZeneca-CH-00927993A

PATIENT
  Age: 14 Year
  Sex: Female
  Weight: 55.2 kg

DRUGS (17)
  1. SELUMETINIB [Suspect]
     Active Substance: SELUMETINIB
     Indication: Neurofibromatosis
     Dosage: 10 MILLIGRAM, BID
  2. NALTREXONE HYDROCHLORIDE [Concomitant]
     Active Substance: NALTREXONE HYDROCHLORIDE
     Route: 065
  3. CLINDAMYCIN PHOSPHATE [Concomitant]
     Active Substance: CLINDAMYCIN PHOSPHATE
     Route: 065
  4. Eligen b12 [Concomitant]
     Route: 065
  5. TYLENOL [Concomitant]
     Active Substance: ACETAMINOPHEN
     Route: 065
  6. IBUPROFEN [Concomitant]
     Active Substance: IBUPROFEN
     Route: 065
  7. VITAMIN D [Concomitant]
     Active Substance: VITAMIN D NOS
     Route: 065
  8. ONDANSETRON [Concomitant]
     Active Substance: ONDANSETRON
     Route: 065
  9. CELEBREX [Concomitant]
     Active Substance: CELECOXIB
     Route: 065
  10. TUMS [Concomitant]
     Active Substance: CALCIUM CARBONATE
     Route: 065
  11. FAMOTIDINE [Concomitant]
     Active Substance: FAMOTIDINE
     Route: 065
  12. TRAZODONE [Concomitant]
     Active Substance: TRAZODONE HYDROCHLORIDE
     Route: 065
  13. CYPROHEPTADINE [Concomitant]
     Active Substance: CYPROHEPTADINE
     Route: 065
  14. HYDROCORTISONE [Concomitant]
     Active Substance: HYDROCORTISONE
     Route: 065
  15. LORATADINE [Concomitant]
     Active Substance: LORATADINE
     Route: 065
  16. SENNA [Concomitant]
     Active Substance: SENNOSIDES
     Route: 065
  17. METHOCARBAMOL [Concomitant]
     Active Substance: METHOCARBAMOL
     Route: 065

REACTIONS (1)
  - Suicidal ideation [Unknown]

NARRATIVE: CASE EVENT DATE: 20250807
